FAERS Safety Report 10049484 (Version 2)
Quarter: 2014Q2

REPORT INFORMATION
  Report Type: Spontaneous
  Country: US (occurrence: US)
  Receive Date: 20140401
  Receipt Date: 20140506
  Transmission Date: 20141212
  Serious: No
  Sender: FDA-Public Use
  Company Number: US-SHIRE-US201400836

PATIENT
  Age: 5 Year
  Sex: Male
  Weight: 17.69 kg

DRUGS (5)
  1. VYVANSE [Suspect]
     Indication: ATTENTION DEFICIT/HYPERACTIVITY DISORDER
     Dosage: 50 MG, 1X/DAY:QD
     Route: 048
     Dates: start: 20140205, end: 20140325
  2. VYVANSE [Suspect]
     Dosage: 20 MG, 1X/DAY:QD
     Route: 048
     Dates: start: 201401, end: 2014
  3. VYVANSE [Suspect]
     Dosage: UNK UNK, 1X/DAY:QD (GRADUALLY TITRATED FROM 20 MG TO 50 MG)
     Route: 048
     Dates: start: 2014, end: 2014
  4. CLONIDINE [Concomitant]
     Indication: INITIAL INSOMNIA
     Dosage: 0.1 MG, UNKNOWN
     Route: 065
     Dates: start: 201310
  5. SINGULAIR [Concomitant]
     Indication: RHINITIS ALLERGIC
     Dosage: 4 MG, UNKNOWN
     Route: 065
     Dates: start: 201303

REACTIONS (2)
  - Tic [Recovered/Resolved]
  - Off label use [Recovered/Resolved]
